FAERS Safety Report 5069079-0 (Version None)
Quarter: 2006Q3

REPORT INFORMATION
  Report Type: 
  Country: None (occurrence: None)
  Receive Date: 20060731
  Receipt Date: 20060718
  Transmission Date: 20061208
  Serious: Yes (Disabling, Other)
  Sender: FDA-Public Use
  Company Number: 2006089670

PATIENT
  Sex: Female
  Weight: 56.6996 kg

DRUGS (8)
  1. NEURONTIN [Suspect]
     Indication: POST HERPETIC NEURALGIA
     Dates: start: 20040801
  2. GABAPENTIN [Suspect]
     Indication: POST HERPETIC NEURALGIA
     Dosage: A FEW MONTHS AGO - STOPPED
  3. LIDOCAINE [Suspect]
     Indication: POST HERPETIC NEURALGIA
     Dosage: A FEW MONTHS AGO - UNKNOWN
  4. KETAMINE HCL [Suspect]
     Indication: POST HERPETIC NEURALGIA
     Dosage: A FEW MONTHS AGO - STOPPED
  5. CORTISONE ACETATE [Suspect]
  6. CYMBALTA [Suspect]
     Indication: NEURALGIA
     Dates: start: 20051101
  7. FEMHRT [Concomitant]
  8. VITAMINS (VITAMINS) [Concomitant]

REACTIONS (11)
  - ACTIVITIES OF DAILY LIVING IMPAIRED [None]
  - ANOREXIA [None]
  - ASTHENIA [None]
  - DRUG INEFFECTIVE [None]
  - DRUG WITHDRAWAL SYNDROME [None]
  - FEELING JITTERY [None]
  - GAIT DISTURBANCE [None]
  - MALAISE [None]
  - PAIN [None]
  - REFUSAL OF TREATMENT BY PATIENT [None]
  - WEIGHT DECREASED [None]
